FAERS Safety Report 20085650 (Version 1)
Quarter: 2021Q4

REPORT INFORMATION
  Report Type: Report from Study
  Country: NL (occurrence: NL)
  Receive Date: 20211118
  Receipt Date: 20211118
  Transmission Date: 20220303
  Serious: Yes (Death, Hospitalization, Other)
  Sender: FDA-Public Use
  Company Number: NL-AMGEN-NLDSL2021173752

PATIENT
  Sex: Male

DRUGS (1)
  1. ARANESP [Suspect]
     Active Substance: DARBEPOETIN ALFA
     Indication: Nephrogenic anaemia
     Dosage: 100 MICROGRAM, (INJVLST 200MCG/ML 0,5ML), QWK
     Route: 058

REACTIONS (3)
  - Postoperative renal failure [Fatal]
  - Fracture [Unknown]
  - Fall [Unknown]
